FAERS Safety Report 17219364 (Version 1)
Quarter: 2020Q1

REPORT INFORMATION
  Report Type: Spontaneous
  Country: US (occurrence: US)
  Receive Date: 20191230
  Receipt Date: 20191230
  Transmission Date: 20200409
  Serious: Yes (Hospitalization)
  Sender: FDA-Public Use
  Company Number: None

PATIENT
  Age: 76 Year
  Sex: Male
  Weight: 47.25 kg

DRUGS (4)
  1. SCOPOLAMINE [Suspect]
     Active Substance: SCOPOLAMINE
     Indication: MOTION SICKNESS
     Dosage: ?          QUANTITY:1 PATCH(ES);OTHER FREQUENCY:1 PER 3 DAYS;?
     Route: 062
     Dates: start: 20191222, end: 20191223
  2. VITAMIN D [Concomitant]
     Active Substance: VITAMIN D NOS
  3. SCOPOLAMINE [Suspect]
     Active Substance: SCOPOLAMINE
     Indication: PROPHYLAXIS
     Dosage: ?          QUANTITY:1 PATCH(ES);OTHER FREQUENCY:1 PER 3 DAYS;?
     Route: 062
     Dates: start: 20191222, end: 20191223
  4. MULTIVITAMIN [Concomitant]
     Active Substance: VITAMINS

REACTIONS (5)
  - Agitation [None]
  - Disorganised speech [None]
  - Hallucination [None]
  - Abnormal behaviour [None]
  - Musculoskeletal stiffness [None]

NARRATIVE: CASE EVENT DATE: 20191223
